FAERS Safety Report 25551348 (Version 1)
Quarter: 2025Q3

REPORT INFORMATION
  Report Type: Spontaneous
  Country: TW (occurrence: TW)
  Receive Date: 20250714
  Receipt Date: 20250714
  Transmission Date: 20251020
  Serious: Yes (Other)
  Sender: EXELIXIS
  Company Number: TW-IPSEN Group, Research and Development-2025-15977

PATIENT
  Age: 55 Year
  Sex: Male

DRUGS (1)
  1. CABOMETYX [Suspect]
     Active Substance: CABOZANTINIB S-MALATE
     Indication: Renal cell carcinoma
     Dosage: 40 MG, QD
     Route: 048
     Dates: start: 20250624, end: 20250625

REACTIONS (1)
  - Hepatitis A [Recovering/Resolving]

NARRATIVE: CASE EVENT DATE: 20250625
